FAERS Safety Report 11313499 (Version 1)
Quarter: 2015Q3

REPORT INFORMATION
  Report Type: Spontaneous
  Country: CH (occurrence: CH)
  Receive Date: 20150727
  Receipt Date: 20150727
  Transmission Date: 20151125
  Serious: Yes (Hospitalization)
  Sender: FDA-Public Use
  Company Number: CH-ELI_LILLY_AND_COMPANY-CH201505003283

PATIENT
  Age: 50 Year
  Sex: Male
  Weight: 100 kg

DRUGS (4)
  1. FORSTEO [Suspect]
     Active Substance: TERIPARATIDE
     Indication: OSTEOPOROSIS
     Dosage: 20 UG, QD
     Route: 058
     Dates: start: 20130801
  2. COVERSUM [Concomitant]
     Active Substance: PERINDOPRIL
     Dosage: UNK
     Route: 048
     Dates: start: 201008
  3. VITAMIN D [Concomitant]
     Active Substance: CHOLECALCIFEROL
     Dosage: UNK
     Dates: end: 201502
  4. CALCIUM SANDOZ                     /00060701/ [Concomitant]
     Dosage: UNK
     Route: 048
     Dates: start: 201308, end: 201502

REACTIONS (4)
  - Hydrocele [Unknown]
  - Renal colic [Unknown]
  - Nephrolithiasis [Recovered/Resolved]
  - Nephrolithiasis [Recovered/Resolved]

NARRATIVE: CASE EVENT DATE: 201412
